FAERS Safety Report 19614977 (Version 4)
Quarter: 2021Q3

REPORT INFORMATION
  Report Type: Spontaneous
  Country: US (occurrence: US)
  Receive Date: 20210727
  Receipt Date: 20210825
  Transmission Date: 20211014
  Serious: No
  Sender: FDA-Public Use
  Company Number: US-ORGANON-O2107USA001943

PATIENT
  Age: 60 Year
  Sex: Female
  Weight: 68.03 kg

DRUGS (2)
  1. ASMANEX [Suspect]
     Active Substance: MOMETASONE FUROATE
     Indication: ASTHMA
     Dosage: 2 PUFFS AT BEDTIME
     Dates: start: 202106, end: 202107
  2. ASMANEX [Suspect]
     Active Substance: MOMETASONE FUROATE
     Indication: HYPERSENSITIVITY

REACTIONS (5)
  - Dyspnoea [Recovered/Resolved]
  - Sleep disorder [Recovered/Resolved]
  - Nasal congestion [Recovered/Resolved]
  - Device malfunction [Unknown]
  - Poor quality device used [Unknown]

NARRATIVE: CASE EVENT DATE: 20210708
